FAERS Safety Report 22920586 (Version 2)
Quarter: 2023Q4

REPORT INFORMATION
  Report Type: Spontaneous
  Country: US (occurrence: US)
  Receive Date: 20230908
  Receipt Date: 20231006
  Transmission Date: 20240110
  Serious: No
  Sender: FDA-Public Use
  Company Number: US-AMGEN-USASP2023158049

PATIENT

DRUGS (3)
  1. OTEZLA [Suspect]
     Active Substance: APREMILAST
     Indication: Palmoplantar pustulosis
     Dosage: UNK UNK, UNK
     Route: 065
  2. OTEZLA [Suspect]
     Active Substance: APREMILAST
     Indication: Off label use
  3. SKYRIZI [Concomitant]
     Active Substance: RISANKIZUMAB-RZAA
     Indication: Psoriatic arthropathy
     Dosage: UNK

REACTIONS (10)
  - Off label use [Unknown]
  - Drug effect less than expected [Unknown]
  - Adverse drug reaction [Unknown]
  - Parosmia [Unknown]
  - Dermatitis [Unknown]
  - Muscle spasms [Unknown]
  - Skin disorder [Unknown]
  - Insomnia [Unknown]
  - Arthralgia [Unknown]
  - Pain [Unknown]
